FAERS Safety Report 4652545-7 (Version None)
Quarter: 2005Q2

REPORT INFORMATION
  Report Type: 
  Country: None (occurrence: None)
  Receive Date: 20050502
  Receipt Date: 20050425
  Transmission Date: 20051028
  Serious: Yes (Hospitalization)
  Sender: FDA-Public Use
  Company Number: 2005-04-1733

PATIENT
  Sex: Male

DRUGS (3)
  1. VIRAFERONPEG [Suspect]
     Indication: HEPATITIS C
     Dosage: SUBCUTANEOUS
     Route: 058
  2. REBETOL [Suspect]
     Indication: HEPATITIS C
     Dosage: ORAL
     Route: 048
  3. SUBUTEX [Concomitant]

REACTIONS (4)
  - ERYSIPELAS [None]
  - HAEMOLYTIC ANAEMIA [None]
  - LEUKOPENIA [None]
  - PHLEBITIS [None]
